FAERS Safety Report 16572158 (Version 1)
Quarter: 2019Q3

REPORT INFORMATION
  Report Type: Other
  Country: CA (occurrence: CA)
  Receive Date: 20190715
  Receipt Date: 20190715
  Transmission Date: 20191004
  Serious: Yes (Life-Threatening, Other)
  Sender: FDA-Public Use
  Company Number: CA-APOTEX-2019AP018025

PATIENT
  Age: 44 Year
  Sex: Female

DRUGS (3)
  1. TYLENOL [Concomitant]
     Active Substance: ACETAMINOPHEN
     Indication: PRODUCT USED FOR UNKNOWN INDICATION
     Dosage: UNK
     Route: 065
  2. CELECOXIB. [Suspect]
     Active Substance: CELECOXIB
     Indication: MUSCULOSKELETAL PAIN
     Dosage: 200 MG, UNK
     Route: 065
  3. MEFENAMIC ACID. [Concomitant]
     Active Substance: MEFENAMIC ACID
     Indication: PRODUCT USED FOR UNKNOWN INDICATION
     Dosage: UNK
     Route: 065

REACTIONS (18)
  - Generalised erythema [Unknown]
  - Loss of consciousness [Unknown]
  - Diarrhoea [Unknown]
  - Disturbance in attention [Unknown]
  - Dizziness [Unknown]
  - Vomiting [Unknown]
  - Heart rate irregular [Unknown]
  - Pain [Unknown]
  - Skin discolouration [Unknown]
  - Chills [Unknown]
  - Feeling cold [Unknown]
  - Pruritus [Unknown]
  - Feeling abnormal [Unknown]
  - Asthenia [Unknown]
  - Confusional state [Unknown]
  - Tremor [Unknown]
  - Hyperhidrosis [Unknown]
  - Abdominal discomfort [Unknown]
